FAERS Safety Report 20110549 (Version 4)
Quarter: 2022Q1

REPORT INFORMATION
  Report Type: Report from Study
  Country: AU (occurrence: AU)
  Receive Date: 20211124
  Receipt Date: 20220121
  Transmission Date: 20220423
  Serious: Yes (Other)
  Sender: FDA-Public Use
  Company Number: AU-GILEAD-2021-0557799

PATIENT
  Age: 68 Year
  Sex: Female

DRUGS (5)
  1. SACITUZUMAB GOVITECAN [Suspect]
     Active Substance: SACITUZUMAB GOVITECAN
     Indication: Triple negative breast cancer
     Dosage: DOSE REDUCTION 25%C1
     Route: 042
  2. SACITUZUMAB GOVITECAN [Suspect]
     Active Substance: SACITUZUMAB GOVITECAN
     Dosage: UNK
     Route: 042
     Dates: start: 20211025, end: 20211025
  3. SACITUZUMAB GOVITECAN [Suspect]
     Active Substance: SACITUZUMAB GOVITECAN
     Dosage: UNK
     Route: 042
     Dates: start: 20211101, end: 20211101
  4. SACITUZUMAB GOVITECAN [Suspect]
     Active Substance: SACITUZUMAB GOVITECAN
     Dosage: 500 MG, DOSE REDUCTION C2D1 REDUCED FROM 810 MG
     Route: 042
     Dates: start: 20211230, end: 20211230
  5. DENOSUMAB [Concomitant]
     Active Substance: DENOSUMAB
     Dosage: UNK
     Dates: start: 202107

REACTIONS (10)
  - Disease progression [Unknown]
  - Neutropenic sepsis [Recovered/Resolved]
  - Pseudomonal sepsis [Recovered/Resolved]
  - Diarrhoea [Recovered/Resolved]
  - Vomiting [Recovered/Resolved]
  - Mucosal inflammation [Recovered/Resolved]
  - Hypocalcaemia [Recovered/Resolved]
  - Fatigue [Recovering/Resolving]
  - Liver function test increased [Unknown]
  - Toxicity to various agents [Unknown]

NARRATIVE: CASE EVENT DATE: 20211105
